FAERS Safety Report 4711279-0 (Version None)
Quarter: 2005Q3

REPORT INFORMATION
  Report Type: 
  Country: None (occurrence: None)
  Receive Date: 20050711
  Receipt Date: 20050629
  Transmission Date: 20060218
  Serious: Yes (Hospitalization)
  Sender: FDA-Public Use
  Company Number: 2005094300

PATIENT
  Age: 19 Year
  Sex: Male
  Weight: 31.7518 kg

DRUGS (1)
  1. DRAMAMINE [Suspect]
     Indication: EUPHORIC MOOD
     Dosage: 800 MG ONCE, ORAL
     Dates: start: 20050628, end: 20050628

REACTIONS (9)
  - ABDOMINAL PAIN UPPER [None]
  - FEELING JITTERY [None]
  - GASTRIC DISORDER [None]
  - INTENTIONAL MISUSE [None]
  - MALAISE [None]
  - NERVOUSNESS [None]
  - OVERDOSE [None]
  - STOMACH DISCOMFORT [None]
  - TREMOR [None]
